FAERS Safety Report 6911826-4 (Version None)
Quarter: 2010Q3

REPORT INFORMATION
  Report Type: 
  Country: None (occurrence: None)
  Receive Date: 20100806
  Receipt Date: 20070809
  Transmission Date: 20110219
  Serious: No
  Sender: FDA-Public Use
  Company Number: US-PFIZER INC-2007063529

PATIENT
  Sex: Female

DRUGS (6)
  1. DETROL LA [Suspect]
     Indication: INCONTINENCE
     Route: 048
  2. DICLOFENAC SODIUM [Concomitant]
  3. LIPITOR [Concomitant]
  4. LEXAPRO [Concomitant]
  5. LEVOXYL [Concomitant]
  6. NEXIUM [Concomitant]

REACTIONS (1)
  - DRUG EFFECT DECREASED [None]
